FAERS Safety Report 9679513 (Version 1)
Quarter: 2013Q4

REPORT INFORMATION
  Report Type: Spontaneous
  Country: US (occurrence: US)
  Receive Date: 20131109
  Receipt Date: 20131109
  Transmission Date: 20140711
  Serious: No
  Sender: FDA-Public Use
  Company Number: US-SANOFI-AVENTIS-2013SA067012

PATIENT
  Age: 57 Year
  Sex: Female
  Weight: 46.26 kg

DRUGS (1)
  1. ALLEGRA-D [Suspect]
     Indication: ALLERGIC SINUSITIS
     Route: 048
     Dates: start: 20130126

REACTIONS (2)
  - Nightmare [Recovered/Resolved]
  - Sleep disorder [Recovered/Resolved]
